FAERS Safety Report 19694734 (Version 1)
Quarter: 2021Q3

REPORT INFORMATION
  Report Type: Spontaneous
  Country: GB (occurrence: GB)
  Receive Date: 20210812
  Receipt Date: 20210812
  Transmission Date: 20211014
  Serious: Yes (Other)
  Sender: FDA-Public Use
  Company Number: GB-ORGANON-O2108GBR000675

PATIENT
  Age: 42 Year
  Sex: Female
  Weight: 65.31 kg

DRUGS (1)
  1. NEXPLANON [Suspect]
     Active Substance: ETONOGESTREL
     Indication: ILL-DEFINED DISORDER
     Dosage: 68 MG
     Dates: start: 20210525, end: 20210725

REACTIONS (5)
  - Abdominal pain [Recovered/Resolved]
  - Depression suicidal [Recovered/Resolved]
  - Adverse drug reaction [Recovered/Resolved]
  - Adverse drug reaction [Recovered/Resolved]
  - Dizziness [Recovered/Resolved]

NARRATIVE: CASE EVENT DATE: 20210525
